FAERS Safety Report 24380077 (Version 1)
Quarter: 2024Q3

REPORT INFORMATION
  Report Type: Spontaneous
  Country: JP (occurrence: JP)
  Receive Date: 20240930
  Receipt Date: 20240930
  Transmission Date: 20241016
  Serious: Yes (Other)
  Sender: VIFOR
  Company Number: JP-Vifor (International) Inc.-VIT-2024-05366

PATIENT
  Age: 56 Year
  Sex: Male
  Weight: 81 kg

DRUGS (5)
  1. VELPHORO [Suspect]
     Active Substance: SUCROFERRIC OXYHYDROXIDE
     Indication: Nephrogenic anaemia
     Dosage: GRANULATED POWDER; 250 MG  TID, PERORAL MEDICINE
     Route: 048
     Dates: start: 20181207, end: 20190110
  2. VELPHORO [Suspect]
     Active Substance: SUCROFERRIC OXYHYDROXIDE
     Indication: Hyperphosphataemia
     Dosage: GRANULATED POWDER; 500 MG TID
     Route: 048
     Dates: start: 20190111, end: 20240524
  3. LANTHANUM CARBONATE [Concomitant]
     Active Substance: LANTHANUM CARBONATE
     Route: 048
  4. CALTAN [Concomitant]
     Active Substance: CALCIUM CARBONATE
     Route: 048
     Dates: start: 20140402, end: 20150911
  5. BIXALOMER [Concomitant]
     Active Substance: BIXALOMER
     Route: 048

REACTIONS (3)
  - Polycythaemia [Recovered/Resolved]
  - Wrong technique in product usage process [Unknown]
  - Off label use [Unknown]

NARRATIVE: CASE EVENT DATE: 20210701
